FAERS Safety Report 9569105 (Version 1)
Quarter: 2013Q3

REPORT INFORMATION
  Report Type: Spontaneous
  Country: US (occurrence: US)
  Receive Date: 20130930
  Receipt Date: 20130930
  Transmission Date: 20140515
  Serious: No
  Sender: FDA-Public Use
  Company Number: US-AMGEN-USASP2013059717

PATIENT
  Age: 50 Year
  Sex: Male

DRUGS (10)
  1. ENBREL [Suspect]
     Indication: PRODUCT USED FOR UNKNOWN INDICATION
     Dosage: 50 MG, 2 TIMES/WK
     Route: 058
  2. COREG [Concomitant]
     Dosage: 6.25 MG, UNK
  3. AMLODIPINE [Concomitant]
     Dosage: 2.5 MG, UNK
  4. VENLAFAXINE [Concomitant]
     Dosage: 25 MG, UNK
  5. METFORMIN [Concomitant]
     Dosage: 500 MG, UNK
  6. LISINOPRIL [Concomitant]
     Dosage: 2.5 MG, UNK
  7. SIMVASTATIN [Concomitant]
     Dosage: 5 MG, UNK
  8. GLYBURIDE [Concomitant]
     Dosage: 1.25 MG, UNK
  9. HYDRALAZINE [Concomitant]
     Dosage: 10 MG, UNK
  10. ASPIRIN BUFFERED [Concomitant]
     Dosage: 325 MG, UNK

REACTIONS (1)
  - Psoriasis [Unknown]
